FAERS Safety Report 5492470-5 (Version None)
Quarter: 2007Q4

REPORT INFORMATION
  Report Type: 
  Country: None (occurrence: None)
  Receive Date: 20071015
  Receipt Date: 20070823
  Transmission Date: 20080405
  Serious: No
  Sender: FDA-Public Use
  Company Number: 2007SP002951

PATIENT
  Age: 69 Year
  Sex: Male
  Weight: 77.1115 kg

DRUGS (10)
  1. LUNESTA [Suspect]
     Indication: INSOMNIA
     Dosage: 2 MG; HS; ORAL, 3 MG; HS; ORAL
     Route: 048
     Dates: start: 20070701, end: 20070801
  2. LUNESTA [Suspect]
     Indication: INSOMNIA
     Dosage: 2 MG; HS; ORAL, 3 MG; HS; ORAL
     Route: 048
     Dates: start: 20070801
  3. SIMVASTATIN [Concomitant]
  4. ATENOLOL [Concomitant]
  5. LISINOPRIL [Concomitant]
  6. NITROGLYCERIN [Concomitant]
  7. ASPIRIN [Concomitant]
  8. HYDROCODONE BITARTRATE [Concomitant]
  9. ALBUTEROL [Concomitant]
  10. AMBIEN [Concomitant]

REACTIONS (2)
  - DRUG INEFFECTIVE [None]
  - INSOMNIA [None]
